FAERS Safety Report 5455521-X (Version None)
Quarter: 2007Q3

REPORT INFORMATION
  Report Type: 
  Country: None (occurrence: None)
  Receive Date: 20070913
  Receipt Date: 20070913
  Transmission Date: 20080115
  Serious: Yes (Other)
  Sender: FDA-Public Use
  Company Number: None

PATIENT
  Age: 41 Year
  Sex: Male
  Weight: 92.9874 kg

DRUGS (6)
  1. LIPITOR [Suspect]
     Indication: BLOOD CHOLESTEROL INCREASED
     Dosage: ONCE DAILY PO
     Route: 048
  2. LIPITOR [Suspect]
     Indication: CARDIAC DISORDER
     Dosage: ONCE DAILY PO
     Route: 048
  3. LANTUS [Concomitant]
  4. HUMALOG [Concomitant]
  5. ZOLOFT [Concomitant]
  6. BABY ASPRIN [Concomitant]

REACTIONS (5)
  - EXERCISE TOLERANCE DECREASED [None]
  - FALL [None]
  - MUSCULAR WEAKNESS [None]
  - PAIN [None]
  - STRESS [None]
